FAERS Safety Report 18198124 (Version 5)
Quarter: 2020Q4

REPORT INFORMATION
  Report Type: Report from Study
  Country: US (occurrence: US)
  Receive Date: 20200826
  Receipt Date: 20201016
  Transmission Date: 20210113
  Serious: Yes (Other)
  Sender: FDA-Public Use
  Company Number: NVSC2020US233056

PATIENT
  Age: 87 Year
  Sex: Male

DRUGS (1)
  1. ENTRESTO [Suspect]
     Active Substance: SACUBITRIL\VALSARTAN
     Indication: PRODUCT USED FOR UNKNOWN INDICATION
     Dosage: UNK, BID
     Route: 048
     Dates: start: 202005

REACTIONS (7)
  - Memory impairment [Unknown]
  - Balance disorder [Unknown]
  - Decreased activity [Unknown]
  - Parkinson^s disease [Unknown]
  - Weight increased [Unknown]
  - Weight decreased [Unknown]
  - Dyspnoea [Unknown]
